FAERS Safety Report 4941596-0 (Version None)
Quarter: 2006Q1

REPORT INFORMATION
  Report Type: 
  Country: None (occurrence: None)
  Receive Date: 20060313
  Receipt Date: 20060302
  Transmission Date: 20060701
  Serious: Yes (Hospitalization, Other)
  Sender: FDA-Public Use
  Company Number: NSADSS2002045977

PATIENT
  Sex: Female
  Weight: 102.51 kg

DRUGS (21)
  1. REMICADE [Suspect]
     Indication: RHEUMATOID ARTHRITIS
     Route: 041
     Dates: start: 20020508, end: 20020508
  2. METHOTREXATE [Concomitant]
     Route: 058
  3. PLAQUENIL [Concomitant]
  4. PREDNISONE TAB [Concomitant]
  5. PREDNISONE TAB [Concomitant]
  6. SULFASALAZINE [Concomitant]
  7. FOLIC ACID [Concomitant]
  8. CALCIUM GLUCONATE [Concomitant]
  9. VITAMIN D [Concomitant]
  10. INHALANTS [Concomitant]
  11. ALBUTEROL [Concomitant]
  12. VERAPAMIL [Concomitant]
  13. FLUCONAZOLE [Concomitant]
  14. OXYCODONE [Concomitant]
  15. COUMADIN [Concomitant]
  16. PREVACID [Concomitant]
  17. OSCAL [Concomitant]
  18. DDAVP [Concomitant]
  19. TRIMETHOPRIN [Concomitant]
  20. PERCOCET [Concomitant]
  21. PERCOCET [Concomitant]

REACTIONS (14)
  - CANDIDIASIS [None]
  - CARDIOVASCULAR DISORDER [None]
  - CHEILOSIS [None]
  - DEPRESSION [None]
  - DIZZINESS [None]
  - DRUG INEFFECTIVE [None]
  - HYPERHIDROSIS [None]
  - KLEBSIELLA INFECTION [None]
  - LEUKOCYTOSIS [None]
  - LUNG NEOPLASM [None]
  - LYMPHADENOPATHY [None]
  - MONARTHRITIS [None]
  - PNEUMONIA [None]
  - URINARY TRACT INFECTION [None]
